FAERS Safety Report 24391901 (Version 5)
Quarter: 2025Q1

REPORT INFORMATION
  Report Type: Report from Study
  Country: CA (occurrence: CA)
  Receive Date: 20241003
  Receipt Date: 20250211
  Transmission Date: 20250409
  Serious: Yes (Death, Hospitalization, Other)
  Sender: TAKEDA
  Company Number: CA-TAKEDA-2024TUS095883

PATIENT
  Age: 66 Year
  Sex: Male

DRUGS (14)
  1. VEDOLIZUMAB [Suspect]
     Active Substance: VEDOLIZUMAB
     Indication: Colitis ulcerative
  2. VEDOLIZUMAB [Suspect]
     Active Substance: VEDOLIZUMAB
  3. Salofalk [Concomitant]
  4. PREDNISONE [Concomitant]
     Active Substance: PREDNISONE
  5. PENTASA [Concomitant]
     Active Substance: MESALAMINE
  6. PENTASA [Concomitant]
     Active Substance: MESALAMINE
     Dosage: UNK, MONTHLY
  7. PENTASA [Concomitant]
     Active Substance: MESALAMINE
  8. CARVEDILOL [Concomitant]
     Active Substance: CARVEDILOL
  9. GLICLAZIDE [Concomitant]
     Active Substance: GLICLAZIDE
  10. PANTOPRAZOLE [Concomitant]
     Active Substance: PANTOPRAZOLE
  11. LASIX [Concomitant]
     Active Substance: FUROSEMIDE
  12. GABAPENTIN [Concomitant]
     Active Substance: GABAPENTIN
  13. ASPIRIN [Concomitant]
     Active Substance: ASPIRIN
  14. IRON [Concomitant]
     Active Substance: IRON
     Indication: Supplementation therapy

REACTIONS (10)
  - Death [Fatal]
  - Cardiac failure congestive [Recovering/Resolving]
  - Pleural effusion [Recovering/Resolving]
  - Colitis ulcerative [Unknown]
  - Cataract [Unknown]
  - Cerebral small vessel ischaemic disease [Unknown]
  - Thrombosis [Recovered/Resolved]
  - Asthenia [Unknown]
  - Balance disorder [Unknown]
  - Pneumonia [Unknown]

NARRATIVE: CASE EVENT DATE: 20241017
